FAERS Safety Report 4769790-2 (Version None)
Quarter: 2005Q3

REPORT INFORMATION
  Report Type: 
  Country: None (occurrence: None)
  Receive Date: 20050913
  Receipt Date: 20050905
  Transmission Date: 20060218
  Serious: Yes (Other)
  Sender: FDA-Public Use
  Company Number: 2005123655

PATIENT
  Age: 27 Year
  Sex: Female
  Weight: 97 kg

DRUGS (3)
  1. DEPO-PROVERA [Suspect]
     Indication: MENSTRUAL DISCOMFORT
     Dosage: 150 MG (150 MG, FIRST INJECTION / TRIMESTRAL), INTRAMUSCULAR
     Route: 030
     Dates: start: 20000101, end: 20000101
  2. FLUOXETINE [Concomitant]
  3. CLONAZEPAM [Concomitant]

REACTIONS (3)
  - BLOOD CHOLESTEROL INCREASED [None]
  - BLOOD PRESSURE INCREASED [None]
  - OBESITY [None]
